FAERS Safety Report 6198925-2 (Version None)
Quarter: 2009Q2

REPORT INFORMATION
  Report Type: 
  Country: None (occurrence: None)
  Receive Date: 20090522
  Receipt Date: 20090506
  Transmission Date: 20091009
  Serious: Yes (Death, Hospitalization)
  Sender: FDA-Public Use
  Company Number: US-BAYER-200910153NA

PATIENT
  Age: 78 Year
  Sex: Male

DRUGS (8)
  1. CAMPATH [Suspect]
     Indication: CHRONIC LYMPHOCYTIC LEUKAEMIA
     Dosage: TOTAL DAILY DOSE: 3 MG  UNIT DOSE: 3 MG
     Route: 058
     Dates: start: 20080925, end: 20080925
  2. CAMPATH [Suspect]
     Dosage: TOTAL DAILY DOSE: 3 MG  UNIT DOSE: 3 MG
     Route: 058
     Dates: start: 20080929, end: 20080929
  3. CAMPATH [Suspect]
     Dosage: TOTAL DAILY DOSE: 3 MG  UNIT DOSE: 3 MG
     Route: 058
     Dates: start: 20081008, end: 20081008
  4. CAMPATH [Suspect]
     Dosage: TOTAL DAILY DOSE: 3 MG  UNIT DOSE: 3 MG
     Route: 058
     Dates: start: 20081016, end: 20081016
  5. CAMPATH [Suspect]
     Dosage: TOTAL DAILY DOSE: 10 MG  UNIT DOSE: 10 MG
     Route: 058
     Dates: start: 20081113, end: 20081113
  6. CAMPATH [Suspect]
     Dosage: TOTAL DAILY DOSE: 10 MG  UNIT DOSE: 10 MG
     Route: 058
     Dates: start: 20081106, end: 20081106
  7. CAMPATH [Suspect]
     Dosage: TOTAL DAILY DOSE: 10 MG  UNIT DOSE: 10 MG
     Route: 058
     Dates: start: 20081030, end: 20081030
  8. CAMPATH [Suspect]
     Dosage: TOTAL DAILY DOSE: 10 MG  UNIT DOSE: 10 MG
     Route: 058
     Dates: start: 20081023, end: 20081023

REACTIONS (2)
  - GUILLAIN-BARRE SYNDROME [None]
  - NEUROPATHY PERIPHERAL [None]
